FAERS Safety Report 9701579 (Version 2)
Quarter: 2013Q4

REPORT INFORMATION
  Report Type: Spontaneous
  Country: NO (occurrence: NO)
  Receive Date: 20131121
  Receipt Date: 20131203
  Transmission Date: 20140711
  Serious: Yes (Other)
  Sender: FDA-Public Use
  Company Number: NO-WATSON-2013-21315

PATIENT
  Age: 81 Year
  Sex: Female

DRUGS (8)
  1. VIVAL [Suspect]
     Indication: PANIC DISORDER
     Dosage: 5 MG, BID (1 TABLET MORNING AND 1 TABLET EVENING)
     Route: 048
  2. XANOR [Suspect]
     Indication: PANIC DISORDER
     Dosage: 0.5 MG, DAILY
     Route: 048
     Dates: start: 201310
  3. XANOR [Suspect]
     Dosage: 1 MG, 2-3 TABLETS PER DAY
     Route: 048
     Dates: start: 2010
  4. XANOR [Suspect]
     Dosage: 1 MG, BID
     Route: 048
  5. XANOR [Suspect]
     Dosage: 1 MG, DAILY
     Route: 048
  6. ALBYL-E [Concomitant]
     Indication: ANTICOAGULANT THERAPY
     Dosage: UNK
     Route: 065
  7. LIPITOR [Concomitant]
     Indication: PROPHYLAXIS
     Dosage: UNK
     Route: 065
  8. LORATADINE [Concomitant]
     Indication: HYPERSENSITIVITY
     Dosage: UNK
     Route: 065

REACTIONS (5)
  - Tremor [Recovering/Resolving]
  - Listless [Unknown]
  - Dizziness [Unknown]
  - Fatigue [Unknown]
  - Drug dependence [Unknown]
